FAERS Safety Report 10891791 (Version 1)
Quarter: 2015Q1

REPORT INFORMATION
  Report Type: Spontaneous
  Country: DK (occurrence: DK)
  Receive Date: 20150306
  Receipt Date: 20150306
  Transmission Date: 20150721
  Serious: Yes (Other)
  Sender: FDA-Public Use
  Company Number: DK-009507513-1503DNK003099

PATIENT

DRUGS (1)
  1. GONADOTROPIN, CHORIONIC [Suspect]
     Active Substance: CHORIOGONADOTROPIN ALFA
     Dosage: 1-2 CYCLES
     Route: 064

REACTIONS (2)
  - Malignant nervous system neoplasm [Unknown]
  - Foetal exposure during pregnancy [Recovered/Resolved]
